FAERS Safety Report 13746593 (Version 3)
Quarter: 2017Q4

REPORT INFORMATION
  Report Type: Spontaneous
  Country: US (occurrence: US)
  Receive Date: 20170712
  Receipt Date: 20171006
  Transmission Date: 20180320
  Serious: Yes (Death, Hospitalization, Other)
  Sender: FDA-Public Use
  Company Number: US-SAOL THERAPEUTICS-2017SAO01161

PATIENT
  Age: 30 Year
  Sex: Male
  Weight: 47.3 kg

DRUGS (9)
  1. VIMPAT [Concomitant]
     Active Substance: LACOSAMIDE
     Dosage: 10 ML, 2X/DAY
  2. ATIVAN [Concomitant]
     Active Substance: LORAZEPAM
     Dosage: 2 ML, 2X/DAY
  3. DEPAKENE [Concomitant]
     Active Substance: VALPROIC ACID
     Dosage: 7.5 ML, 3X/DAY
  4. COMPOUNDED BACLOFEN [Suspect]
     Active Substance: BACLOFEN
     Indication: MUSCLE SPASTICITY
     Dosage: 500 ?G, \DAY
     Route: 037
  5. ATIVAN [Suspect]
     Active Substance: LORAZEPAM
     Dosage: UNK
     Dates: start: 20170217
  6. PHENOBARBITAL. [Concomitant]
     Active Substance: PHENOBARBITAL
     Dosage: 17.5 ML, 1X/DAY (IN THE EVENING BY G-TUBE)
     Route: 048
  7. FLONASE [Concomitant]
     Active Substance: FLUTICASONE PROPIONATE
     Dosage: UNK UNK, AS NEEDED
  8. FELBAMATE. [Concomitant]
     Active Substance: FELBAMATE
     Dosage: 15 ML, 2X/DAY (PER G-TUBE)
     Route: 048
  9. PHENOBARBITAL. [Concomitant]
     Active Substance: PHENOBARBITAL
     Dosage: 15 ML, 1X/DAY (IN THE MORNING BY G-TUBE)
     Route: 048

REACTIONS (10)
  - Drug withdrawal syndrome [Recovered/Resolved]
  - Sinusitis [Recovered/Resolved]
  - Agitation [Not Recovered/Not Resolved]
  - Upper airway obstruction [Recovered/Resolved]
  - Fall [Recovered/Resolved]
  - Blood urea increased [Unknown]
  - Implant site extravasation [Fatal]
  - Meningitis staphylococcal [Fatal]
  - Organ failure [Fatal]
  - Sedation [Unknown]

NARRATIVE: CASE EVENT DATE: 2016
